FAERS Safety Report 18554156 (Version 1)
Quarter: 2020Q4

REPORT INFORMATION
  Report Type: Report from Study
  Country: GB (occurrence: GB)
  Receive Date: 20201127
  Receipt Date: 20201127
  Transmission Date: 20210114
  Serious: Yes (Hospitalization)
  Sender: FDA-Public Use
  Company Number: GB-JNJFOC-20201139699

PATIENT
  Sex: Male
  Weight: 99 kg

DRUGS (4)
  1. FELODIPINE. [Concomitant]
     Active Substance: FELODIPINE
     Dates: start: 20200101, end: 20200227
  2. DILTIAZEM. [Concomitant]
     Active Substance: DILTIAZEM
     Dates: start: 20201005
  3. WARFARIN [Concomitant]
     Active Substance: WARFARIN
     Dates: start: 20200121
  4. STELARA [Suspect]
     Active Substance: USTEKINUMAB
     Indication: PSORIASIS
     Route: 058
     Dates: start: 20181109

REACTIONS (1)
  - Lower respiratory tract infection [Recovered/Resolved]

NARRATIVE: CASE EVENT DATE: 20200323
